FAERS Safety Report 4880763-1 (Version None)
Quarter: 2006Q1

REPORT INFORMATION
  Report Type: 
  Country: None (occurrence: None)
  Receive Date: 20060111
  Receipt Date: 20051202
  Transmission Date: 20060701
  Serious: No
  Sender: FDA-Public Use
  Company Number: 2005S1000261

PATIENT

DRUGS (2)
  1. CUBICIN [Suspect]
     Dosage: 420 MG;Q24H;IV
     Route: 042
     Dates: start: 20051124
  2. WARFARIN SODIUM [Concomitant]

REACTIONS (2)
  - DIZZINESS [None]
  - MEDICATION ERROR [None]
